FAERS Safety Report 8272068-6 (Version None)
Quarter: 2012Q2

REPORT INFORMATION
  Report Type: 
  Country: None (occurrence: None)
  Receive Date: 20120410
  Receipt Date: 20120330
  Transmission Date: 20120825
  Serious: Yes (Hospitalization)
  Sender: FDA-Public Use
  Company Number: US-TEVA-330795USA

PATIENT
  Sex: Male

DRUGS (18)
  1. CHLORPROMAZINE [Concomitant]
     Indication: HICCUPS
     Dosage: 1 TABLET 3 TIMES DAILY AS NEEDED
     Route: 048
  2. PLANTAGO OVATA [Concomitant]
     Indication: CONSTIPATION
     Dosage: 3.4G/5.2 POWDER-2 TBS IN WATER
     Route: 048
  3. RITUXIMAB [Suspect]
     Indication: LYMPHOMA
     Route: 042
     Dates: start: 20110512, end: 20110512
  4. FAMOTIDINE [Concomitant]
     Dosage: 40 MILLIGRAM;
     Route: 048
  5. ACETAMINOPHEN [Concomitant]
     Indication: PAIN
  6. BENAZEPRIL HYDROCHLORIDE [Concomitant]
     Indication: HYPERTENSION
     Dosage: 20 MILLIGRAM;
     Route: 048
  7. ACETYLSALICYLIC ACID SRT [Concomitant]
     Dosage: 81 MILLIGRAM;
     Route: 048
  8. LORAZEPAM [Concomitant]
     Indication: ANXIETY
     Route: 048
  9. BENDAMUSTINE [Suspect]
     Indication: LYMPHOMA
     Route: 042
     Dates: start: 20110510, end: 20110511
  10. CARBOPLATIN [Suspect]
     Indication: LYMPHOMA
     Route: 042
     Dates: start: 20110510, end: 20110510
  11. OXYCODONE HCL [Concomitant]
     Indication: PAIN
     Dosage: 1/2-1 TAB Q4-6HRS
     Route: 048
  12. LEVOFLOXACIN [Concomitant]
     Indication: PROPHYLAXIS
     Dosage: 500 MILLIGRAM;
     Route: 048
  13. POLYETHYLENE GLYCOL [Concomitant]
     Indication: CONSTIPATION
     Dosage: 1 HEAPING TSP/4-8OZ WATER DAILY
     Route: 048
  14. PROCHLORPERAZINE EDISYLATE [Concomitant]
     Indication: NAUSEA
     Dosage: 1 TAB 4 TIMES DAILY PRN
     Route: 048
  15. LORAZEPAM [Concomitant]
     Indication: NAUSEA
  16. CODEINE PHOS.W/GUAIFENESIN/PHENIRAMINE MAL. [Concomitant]
     Indication: COUGH
     Dosage: 10MG-100MG/5ML 1-2 TSP Q6HRS
     Route: 048
  17. ETOPOSIDE [Suspect]
     Indication: LYMPHOMA
     Route: 042
     Dates: start: 20110510, end: 20110512
  18. LORATADINE [Concomitant]
     Dosage: 10 MG
     Route: 048

REACTIONS (2)
  - ATRIAL FIBRILLATION [None]
  - HYPOTENSION [None]
